FAERS Safety Report 15155715 (Version 1)
Quarter: 2018Q3

REPORT INFORMATION
  Report Type: Spontaneous
  Country: US (occurrence: US)
  Receive Date: 20180717
  Receipt Date: 20180717
  Transmission Date: 20181010
  Serious: Yes (Other)
  Sender: FDA-Public Use
  Company Number: US-BAUSCH-BL-2018-019342

PATIENT
  Age: 28 Year
  Sex: Male

DRUGS (2)
  1. MEROPENEM. [Concomitant]
     Active Substance: MEROPENEM
     Indication: SPIROCHAETAL INFECTION
  2. GENTAMICIN. [Suspect]
     Active Substance: GENTAMICIN
     Indication: SPIROCHAETAL INFECTION
     Route: 065

REACTIONS (1)
  - Ototoxicity [Unknown]
